FAERS Safety Report 20155472 (Version 1)
Quarter: 2021Q4

REPORT INFORMATION
  Report Type: Spontaneous
  Country: US (occurrence: US)
  Receive Date: 20211207
  Receipt Date: 20211207
  Transmission Date: 20220303
  Serious: No
  Sender: FDA-Public Use
  Company Number: US-drreddys-SPO/USA/21/0144417

PATIENT
  Age: 70 Year
  Sex: Male
  Weight: 83.25 kg

DRUGS (2)
  1. LEVOFLOXACIN [Suspect]
     Active Substance: LEVOFLOXACIN
     Indication: Diverticulitis
     Dates: start: 20211123, end: 20211128
  2. SIMVASTATIN [Concomitant]
     Active Substance: SIMVASTATIN
     Indication: Product used for unknown indication

REACTIONS (2)
  - Limb discomfort [Unknown]
  - Tendon discomfort [Unknown]

NARRATIVE: CASE EVENT DATE: 20211101
